FAERS Safety Report 5429039-4 (Version None)
Quarter: 2007Q3

REPORT INFORMATION
  Report Type: 
  Country: None (occurrence: None)
  Receive Date: 20070829
  Receipt Date: 20070115
  Transmission Date: 20080115
  Serious: No
  Sender: FDA-Public Use
  Company Number: A0635693A

PATIENT
  Age: 44 Year
  Sex: Female

DRUGS (4)
  1. MALARONE [Suspect]
     Indication: MALARIA
     Dosage: 250MGML PER DAY
     Route: 048
     Dates: start: 20061225, end: 20070112
  2. YASMIN [Concomitant]
  3. MULTI-VITAMIN [Concomitant]
  4. OINTMENT [Concomitant]

REACTIONS (2)
  - PRURITUS [None]
  - RASH GENERALISED [None]
